FAERS Safety Report 6139644-8 (Version None)
Quarter: 2009Q2

REPORT INFORMATION
  Report Type: 
  Country: None (occurrence: None)
  Receive Date: 20090401
  Receipt Date: 20090302
  Transmission Date: 20091009
  Serious: No
  Sender: FDA-Public Use
  Company Number: US-BAYER-200910701BCC

PATIENT
  Age: 83 Year
  Sex: Female
  Weight: 50 kg

DRUGS (12)
  1. ALEVE (CAPLET) [Suspect]
     Indication: MUSCULOSKELETAL PAIN
     Dosage: TOTAL DAILY DOSE: 220 MG  UNIT DOSE: 220 MG
     Route: 048
     Dates: start: 20090218
  2. DARVOCET [Concomitant]
  3. LEVOTHYROXINE SODIUM [Concomitant]
  4. ZETIA [Concomitant]
  5. TRICOR [Concomitant]
  6. CELEBREX [Concomitant]
  7. HYZAAR [Concomitant]
  8. AMLODIPINE BESYLATE [Concomitant]
  9. AMITRIPTYLINE [Concomitant]
  10. DIAZEPAM [Concomitant]
  11. BONIVA [Concomitant]
  12. OSCAL [Concomitant]

REACTIONS (1)
  - ABDOMINAL PAIN [None]
